FAERS Safety Report 7397182-9 (Version None)
Quarter: 2011Q2

REPORT INFORMATION
  Report Type: 
  Country: None (occurrence: None)
  Receive Date: 20110406
  Receipt Date: 20101116
  Transmission Date: 20111010
  Serious: Yes (Hospitalization, Other)
  Sender: FDA-Public Use
  Company Number: PHHY2010IE77718

PATIENT
  Sex: Female

DRUGS (2)
  1. CENTRUM [Suspect]
  2. CO-DIOVAN [Suspect]
     Dosage: 160/25 MG
     Route: 048

REACTIONS (3)
  - CHEST DISCOMFORT [None]
  - MALAISE [None]
  - FEELING ABNORMAL [None]
